FAERS Safety Report 4700091-4 (Version None)
Quarter: 2005Q2

REPORT INFORMATION
  Report Type: 
  Country: None (occurrence: None)
  Receive Date: 20050627
  Receipt Date: 20050616
  Transmission Date: 20051028
  Serious: Yes (Other)
  Sender: FDA-Public Use
  Company Number: FR-AMGEN-UK139014

PATIENT
  Age: 79 Year
  Sex: Female

DRUGS (1)
  1. ARANESP [Suspect]
     Indication: ANAEMIA
     Route: 058
     Dates: start: 20050602, end: 20050609

REACTIONS (1)
  - PURPURA [None]
